FAERS Safety Report 5997579-5 (Version None)
Quarter: 2008Q4

REPORT INFORMATION
  Report Type: 
  Country: None (occurrence: None)
  Receive Date: 20081212
  Receipt Date: 20081117
  Transmission Date: 20090506
  Serious: No
  Sender: FDA-Public Use
  Company Number: US-ABBOTT-08P-163-0488151-00

PATIENT
  Sex: Female
  Weight: 59.02 kg

DRUGS (12)
  1. HUMIRA [Suspect]
     Indication: RHEUMATOID ARTHRITIS
     Route: 058
     Dates: start: 20081003
  2. DULOXETINE HYDROCHLORIDE [Concomitant]
     Indication: DEPRESSION
  3. FENTANYL-100 [Concomitant]
     Indication: PAIN
     Dosage: PATCH
  4. CONJUGATED ESTROGENS [Concomitant]
     Indication: HORMONE REPLACEMENT THERAPY
  5. MOMETASONE FUROATE [Concomitant]
     Indication: HYPERSENSITIVITY
  6. TRAZODONE HCL [Concomitant]
     Indication: SLEEP DISORDER THERAPY
  7. HYDROCHLOROTHIAZIDE [Concomitant]
     Indication: OEDEMA
  8. PENTOSAN POLYSULFATE SODIUM [Concomitant]
     Indication: URINARY INCONTINENCE
  9. SOLIFENACIN [Concomitant]
     Indication: URINARY INCONTINENCE
  10. VIDAL DOT [Concomitant]
     Indication: HORMONE REPLACEMENT THERAPY
  11. VICODIN [Concomitant]
     Indication: PAIN
  12. ROPINIROLE HYDROCHLORIDE [Concomitant]
     Indication: RESTLESS LEGS SYNDROME

REACTIONS (1)
  - INCORRECT DOSE ADMINISTERED [None]
